FAERS Safety Report 15550610 (Version 1)
Quarter: 2018Q4

REPORT INFORMATION
  Report Type: Spontaneous
  Country: US (occurrence: US)
  Receive Date: 20181019
  Receipt Date: 20181019
  Transmission Date: 20190205
  Serious: Yes (Hospitalization)
  Sender: FDA-Public Use
  Company Number: None

PATIENT
  Age: 80 Year
  Sex: Female
  Weight: 102.9 kg

DRUGS (10)
  1. AURANOFIN 6 MG [Suspect]
     Active Substance: AURANOFIN
     Indication: OVARIAN CANCER
     Route: 048
     Dates: end: 20181004
  2. ALBUTEROL. [Concomitant]
     Active Substance: ALBUTEROL
  3. FUROSEMID [Concomitant]
     Active Substance: FUROSEMIDE
  4. PAROXETINE. [Concomitant]
     Active Substance: PAROXETINE
  5. SIROLIMUS 5 MG [Suspect]
     Active Substance: SIROLIMUS
     Indication: OVARIAN CANCER
     Route: 048
     Dates: end: 20181004
  6. SPIRIVA [Concomitant]
     Active Substance: TIOTROPIUM BROMIDE MONOHYDRATE
  7. METOPROLOL SUCCINATE. [Concomitant]
     Active Substance: METOPROLOL SUCCINATE
  8. LYRICA [Concomitant]
     Active Substance: PREGABALIN
  9. SENNA [Concomitant]
     Active Substance: SENNA LEAF\SENNOSIDES\SENNOSIDES A AND B
  10. OMEPRAZOLE. [Concomitant]
     Active Substance: OMEPRAZOLE

REACTIONS (6)
  - Blood alkaline phosphatase increased [None]
  - Dehydration [None]
  - Pleural effusion [None]
  - Hydronephrosis [None]
  - Stomatitis [None]
  - Fatigue [None]

NARRATIVE: CASE EVENT DATE: 20181004
